FAERS Safety Report 7690899-8 (Version None)
Quarter: 2011Q3

REPORT INFORMATION
  Report Type: 
  Country: None (occurrence: None)
  Receive Date: 20110818
  Receipt Date: 20110818
  Transmission Date: 20111222
  Serious: No
  Sender: FDA-Public Use
  Company Number: None

PATIENT
  Age: 47 Year
  Sex: Female
  Weight: 62.595 kg

DRUGS (1)
  1. TEKTURNA [Suspect]
     Indication: BLOOD PRESSURE
     Dosage: ONE TABLET
     Route: 048
     Dates: start: 20101210, end: 20110617

REACTIONS (3)
  - MYALGIA [None]
  - ARTHRALGIA [None]
  - MUSCLE TWITCHING [None]
